FAERS Safety Report 9650947 (Version 2)
Quarter: 2013Q4

REPORT INFORMATION
  Report Type: Spontaneous
  Country: US (occurrence: US)
  Receive Date: 20131029
  Receipt Date: 20131114
  Transmission Date: 20140711
  Serious: No
  Sender: FDA-Public Use
  Company Number: US-PFIZER INC-2013303756

PATIENT
  Age: 53 Year
  Sex: Female

DRUGS (10)
  1. REVATIO [Suspect]
     Indication: PULMONARY ARTERIAL HYPERTENSION
     Dosage: 20 MG, 3X/DAY
     Route: 048
     Dates: start: 20111109
  2. REVATIO [Suspect]
     Dosage: 20 MG, UNK
     Route: 048
     Dates: start: 20110829
  3. LETAIRIS [Concomitant]
     Dosage: UNK
  4. GABAPENTIN [Concomitant]
     Dosage: UNK
  5. BENADRYL [Concomitant]
     Dosage: UNK
  6. ALLOPURINOL [Concomitant]
     Dosage: UNK
  7. AMITRIPTYLINE [Concomitant]
     Dosage: UNK
  8. ROPINIROLE [Concomitant]
     Dosage: UNK
  9. OMEPRAZOLE [Concomitant]
     Dosage: UNK
  10. METOPROLOL [Concomitant]
     Dosage: UNK

REACTIONS (1)
  - Sinusitis [Unknown]
